APPROVED DRUG PRODUCT: MEGACE
Active Ingredient: MEGESTROL ACETATE
Strength: 40MG **Federal Register determination that product was not discontinued or withdrawn for safety or effectiveness reasons**
Dosage Form/Route: TABLET;ORAL
Application: N016979 | Product #002
Applicant: BRISTOL MYERS SQUIBB
Approved: Approved Prior to Jan 1, 1982 | RLD: Yes | RS: No | Type: DISCN